FAERS Safety Report 7135238-6 (Version None)
Quarter: 2010Q4

REPORT INFORMATION
  Report Type: 
  Country: None (occurrence: None)
  Receive Date: 20101203
  Receipt Date: 20101123
  Transmission Date: 20110411
  Serious: Yes (Hospitalization)
  Sender: FDA-Public Use
  Company Number: A0765786A

PATIENT
  Age: 65 Year
  Sex: Male
  Weight: 97.7 kg

DRUGS (5)
  1. AVANDIA [Suspect]
     Indication: DIABETES MELLITUS
     Dosage: 2MG TWICE PER DAY
     Route: 048
     Dates: start: 20050930, end: 20060801
  2. FLOMAX [Concomitant]
  3. NEBULIZER [Concomitant]
  4. PROTONIX [Concomitant]
  5. XANAX [Concomitant]

REACTIONS (1)
  - CEREBROVASCULAR ACCIDENT [None]
